FAERS Safety Report 8972001 (Version 1)
Quarter: 2012Q4

REPORT INFORMATION
  Report Type: 
  Country: FR (occurrence: FR)
  Receive Date: 20121219
  Receipt Date: 20121219
  Transmission Date: 20130627
  Serious: Yes (Other)
  Sender: FDA-Public Use
  Company Number: FR-JNJFOC-20121206015

PATIENT
  Age: 48 Year
  Sex: Female

DRUGS (5)
  1. ABCIXIMAB [Suspect]
     Indication: ACUTE MYOCARDIAL INFARCTION
     Dosage: 0.25 mg/kg body weight
     Route: 022
  2. ABCIXIMAB [Suspect]
     Indication: ACUTE MYOCARDIAL INFARCTION
     Dosage: infusion at 0.125 mcg/kg per min was given for 12 hours
     Route: 042
  3. ASPIRIN [Concomitant]
     Indication: ACUTE MYOCARDIAL INFARCTION
     Route: 065
  4. PRASUGREL [Concomitant]
     Indication: ACUTE MYOCARDIAL INFARCTION
     Dosage: loading dose
     Route: 065
  5. ENOXAPARIN [Concomitant]
     Indication: ACUTE MYOCARDIAL INFARCTION
     Route: 042

REACTIONS (4)
  - Troponin I increased [Unknown]
  - Drug ineffective [Unknown]
  - Accelerated idioventricular rhythm [Unknown]
  - Incorrect route of drug administration [Unknown]
